FAERS Safety Report 9351719 (Version 3)
Quarter: 2013Q4

REPORT INFORMATION
  Report Type: Report from Study
  Country: GB (occurrence: GB)
  Receive Date: 20130617
  Receipt Date: 20131231
  Transmission Date: 20140711
  Serious: Yes (Other)
  Sender: FDA-Public Use
  Company Number: GB-CELGENEUS-167-20785-13060815

PATIENT
  Age: 76 Year
  Sex: Male

DRUGS (3)
  1. THALIDOMIDE [Suspect]
     Indication: PLASMA CELL MYELOMA
     Route: 048
     Dates: start: 20120526, end: 20120925
  2. CYCLOPHOSPHAMIDE [Suspect]
     Indication: PLASMA CELL MYELOMA
     Dosage: 2700 MILLIGRAM
     Route: 065
     Dates: start: 20120526, end: 20120925
  3. DEXAMETHASONE [Suspect]
     Indication: PLASMA CELL MYELOMA
     Dosage: 2928 MILLIGRAM
     Route: 065
     Dates: start: 20120526, end: 20120925

REACTIONS (1)
  - Colorectal cancer metastatic [Not Recovered/Not Resolved]
